FAERS Safety Report 19178695 (Version 1)
Quarter: 2021Q2

REPORT INFORMATION
  Report Type: Spontaneous
  Country: US (occurrence: US)
  Receive Date: 20210421
  Receipt Date: 20210421
  Transmission Date: 20210717
  Serious: Yes (Death)
  Sender: FDA-Public Use
  Company Number: None

PATIENT
  Age: 46 Year
  Sex: Female
  Weight: 88.6 kg

DRUGS (1)
  1. ACTIVASE [Suspect]
     Active Substance: ALTEPLASE
     Indication: PULMONARY EMBOLISM
     Dosage: ?          OTHER FREQUENCY:ONCE;?
     Route: 041
     Dates: start: 20210407, end: 20210407

REACTIONS (5)
  - Vaginal haemorrhage [None]
  - Haemodynamic instability [None]
  - Cerebral haemorrhage [None]
  - Brain death [None]
  - Cerebral haematoma [None]

NARRATIVE: CASE EVENT DATE: 20210407
